FAERS Safety Report 16953421 (Version 1)
Quarter: 2019Q4

REPORT INFORMATION
  Report Type: Spontaneous
  Country: US (occurrence: US)
  Receive Date: 20191023
  Receipt Date: 20191023
  Transmission Date: 20200122
  Serious: No
  Sender: FDA-Public Use
  Company Number: US-SA-2019SA290371

PATIENT

DRUGS (1)
  1. ADMELOG [Suspect]
     Active Substance: INSULIN LISPRO
     Dosage: 20, 40, 60, 80 UNITS AFTER THE MEAL
     Route: 065

REACTIONS (2)
  - Intentional product use issue [Unknown]
  - Cardiac disorder [Unknown]
